FAERS Safety Report 5040240-4 (Version None)
Quarter: 2006Q2

REPORT INFORMATION
  Report Type: 
  Country: None (occurrence: None)
  Receive Date: 20060630
  Receipt Date: 20060619
  Transmission Date: 20061013
  Serious: Yes (Hospitalization)
  Sender: FDA-Public Use
  Company Number: BR-JNJFOC-20060604793

PATIENT
  Age: 82 Year
  Sex: Male
  Weight: 59 kg

DRUGS (3)
  1. IMOSEC [Suspect]
     Indication: PROPHYLAXIS OF NAUSEA AND VOMITING
     Route: 048
  2. CHEMOTHERAPY [Concomitant]
     Indication: COLON CANCER
  3. HOMEOPATHIC FORMULATON [Concomitant]
     Indication: DIARRHOEA
     Route: 048

REACTIONS (4)
  - ADVERSE EVENT [None]
  - FLATULENCE [None]
  - NASAL DISCOMFORT [None]
  - SOMNOLENCE [None]
